FAERS Safety Report 6370100-8 (Version None)
Quarter: 2009Q3

REPORT INFORMATION
  Report Type: 
  Country: None (occurrence: None)
  Receive Date: 20090923
  Receipt Date: 20070620
  Transmission Date: 20100115
  Serious: Yes (Other)
  Sender: FDA-Public Use
  Company Number: US-ASTRAZENECA-2006UW21316

PATIENT
  Age: 15264 Day
  Sex: Female
  Weight: 72.6 kg

DRUGS (17)
  1. SEROQUEL [Suspect]
     Indication: HALLUCINATION, AUDITORY
     Route: 048
  2. SEROQUEL [Suspect]
     Dosage: 25 TO 200 MG
     Route: 048
     Dates: start: 20040914
  3. RISPERDAL [Concomitant]
     Dates: start: 20000101, end: 20010101
  4. PROZAC [Concomitant]
  5. ZOLOFT [Concomitant]
  6. DESYREL [Concomitant]
  7. LISINOPRIL [Concomitant]
  8. PAXIL [Concomitant]
     Dosage: 20 TO 75 MG
  9. GLIPIZIDE [Concomitant]
     Dosage: 5 MG, 10 MG
  10. ZOCOR [Concomitant]
  11. ALBUTEROL [Concomitant]
  12. NEURONTIN [Concomitant]
     Indication: HOT FLUSH
     Dates: start: 20010101
  13. VICODIN [Concomitant]
  14. AVANDIA [Concomitant]
  15. INSULIN [Concomitant]
     Dosage: 10 UNITS, 18 UNITS
     Dates: end: 20061120
  16. GLUCOPHAGE [Concomitant]
  17. TRILEPTAL [Concomitant]
     Dosage: 300 MG, 600MG

REACTIONS (8)
  - ABDOMINAL PAIN LOWER [None]
  - BACK PAIN [None]
  - DIABETES MELLITUS [None]
  - HOT FLUSH [None]
  - HYPOGLYCAEMIA [None]
  - SCHIZOAFFECTIVE DISORDER [None]
  - SUICIDAL IDEATION [None]
  - VERTIGO [None]
